FAERS Safety Report 10146338 (Version 1)
Quarter: 2014Q2

REPORT INFORMATION
  Report Type: Spontaneous
  Country: US (occurrence: US)
  Receive Date: 20140501
  Receipt Date: 20140501
  Transmission Date: 20141212
  Serious: Yes (Other)
  Sender: FDA-Public Use
  Company Number: US-SA-2014SA054413

PATIENT
  Sex: Male

DRUGS (5)
  1. PLAVIX [Suspect]
     Indication: PRODUCT USED FOR UNKNOWN INDICATION
     Route: 065
  2. LIPITOR [Concomitant]
  3. XELODA [Concomitant]
     Indication: RENAL CANCER
     Dates: start: 201008
  4. XELODA [Concomitant]
     Indication: RENAL CANCER
     Dates: start: 20120815, end: 20120919
  5. ANTINEOPLASTIC AGENTS [Concomitant]
     Indication: RENAL CANCER
     Dates: start: 20121220, end: 20130123

REACTIONS (1)
  - Postoperative wound infection [Unknown]
